FAERS Safety Report 16469749 (Version 2)
Quarter: 2019Q2

REPORT INFORMATION
  Report Type: Spontaneous
  Country: US (occurrence: US)
  Receive Date: 20190624
  Receipt Date: 20190626
  Transmission Date: 20190711
  Serious: Yes (Life-Threatening, Hospitalization, Other)
  Sender: FDA-Public Use
  Company Number: US-PFIZER INC-2019262114

PATIENT
  Age: 45 Year
  Sex: Male

DRUGS (1)
  1. GENTAMICIN SULFATE. [Suspect]
     Active Substance: GENTAMICIN SULFATE
     Indication: PNEUMONIA PSEUDOMONAL
     Dosage: UNK

REACTIONS (4)
  - Movement disorder [Recovered/Resolved]
  - Neurological decompensation [Recovered/Resolved]
  - Renal failure [Recovered/Resolved]
  - Unresponsive to stimuli [Recovered/Resolved]
